FAERS Safety Report 6584156-0 (Version None)
Quarter: 2010Q1

REPORT INFORMATION
  Report Type: 
  Country: None (occurrence: None)
  Receive Date: 20100213
  Receipt Date: 20100213
  Transmission Date: 20100710
  Serious: Yes (Other)
  Sender: FDA-Public Use
  Company Number: None

PATIENT
  Sex: Male
  Weight: 83.0083 kg

DRUGS (12)
  1. CITALOPRAM HYDROBROMIDE [Suspect]
     Indication: MAJOR DEPRESSION
     Dosage: 40MG QDAY PO
     Route: 048
     Dates: start: 20100112, end: 20100209
  2. HYDROXYZINE [Concomitant]
  3. HYDROCHLOROTHIAZIDE [Concomitant]
  4. FINASTERIDE [Concomitant]
  5. TAMSULOSIN [Concomitant]
  6. LISINOPRIL [Concomitant]
  7. RISDEDRONATE [Concomitant]
  8. HYDROCORTISONE/PRAMOXINE [Concomitant]
  9. ARTIFICIAL TEARS [Concomitant]
  10. IBUPROFEN [Concomitant]
  11. CAPSAICIN [Concomitant]
  12. METHADONE [Concomitant]

REACTIONS (5)
  - AGGRESSION [None]
  - ANXIETY [None]
  - INSOMNIA [None]
  - PRODUCT SUBSTITUTION ISSUE [None]
  - UNEVALUABLE EVENT [None]
